FAERS Safety Report 22302989 (Version 2)
Quarter: 2023Q2

REPORT INFORMATION
  Report Type: Spontaneous
  Country: US (occurrence: US)
  Receive Date: 20230510
  Receipt Date: 20230516
  Transmission Date: 20230722
  Serious: Yes (Other)
  Sender: FDA-Public Use
  Company Number: US-INCYTE CORPORATION-2023IN004559

PATIENT

DRUGS (2)
  1. JAKAFI [Suspect]
     Active Substance: RUXOLITINIB
     Indication: Myelofibrosis
     Dosage: 20 MILLIGRAM, TWICE A DAY
     Route: 048
     Dates: start: 20230407
  2. JAKAFI [Suspect]
     Active Substance: RUXOLITINIB
     Dosage: 20 MILLIGRAM, TWICE A DAY
     Route: 048
     Dates: start: 20230407

REACTIONS (7)
  - Diabetes mellitus [Unknown]
  - Laboratory test abnormal [Unknown]
  - Blood insulin abnormal [Unknown]
  - Product dose omission in error [Unknown]
  - Product dose omission issue [Unknown]
  - Hypertension [Unknown]
  - Blood cholesterol increased [Unknown]
